FAERS Safety Report 6130032-7 (Version None)
Quarter: 2009Q1

REPORT INFORMATION
  Report Type: 
  Country: None (occurrence: None)
  Receive Date: 20090324
  Receipt Date: 20090319
  Transmission Date: 20090719
  Serious: Yes (Death, Hospitalization)
  Sender: FDA-Public Use
  Company Number: BE-CELGENEUS-013-21880-09031242

PATIENT
  Sex: Male

DRUGS (1)
  1. REVLIMID [Suspect]
     Indication: MYELOFIBROSIS
     Route: 048
     Dates: start: 20090223, end: 20090315

REACTIONS (5)
  - BRONCHOPNEUMONIA [None]
  - CARDIAC FAILURE [None]
  - MALAISE [None]
  - PYREXIA [None]
  - RESPIRATORY FAILURE [None]
